FAERS Safety Report 23605733 (Version 1)
Quarter: 2024Q1

REPORT INFORMATION
  Report Type: Spontaneous
  Country: US (occurrence: US)
  Receive Date: 20240307
  Receipt Date: 20240307
  Transmission Date: 20240409
  Serious: No
  Sender: FDA-Public Use
  Company Number: US-SA-SAC20240301001139

PATIENT
  Age: 76 Year
  Sex: Male

DRUGS (2)
  1. PLAVIX [Suspect]
     Active Substance: CLOPIDOGREL BISULFATE
     Indication: Stent placement
     Dosage: UNK
     Route: 065
     Dates: start: 202402, end: 202402
  2. ORGOVYX [Concomitant]
     Active Substance: RELUGOLIX
     Dosage: UNK
     Route: 065

REACTIONS (1)
  - Rash [Unknown]

NARRATIVE: CASE EVENT DATE: 20240201
